FAERS Safety Report 7989085-3 (Version None)
Quarter: 2011Q4

REPORT INFORMATION
  Report Type: 
  Country: None (occurrence: None)
  Receive Date: 20111219
  Receipt Date: 20111206
  Transmission Date: 20120403
  Serious: Yes (Hospitalization)
  Sender: FDA-Public Use
  Company Number: FR-US-EMD SERONO, INC.-7091421

PATIENT
  Sex: Female
  Weight: 55 kg

DRUGS (8)
  1. IMURAN [Suspect]
     Indication: MULTIPLE SCLEROSIS
     Route: 048
     Dates: start: 19930101, end: 20111021
  2. CALCIUM [Concomitant]
     Indication: BREAST CANCER STAGE I
  3. CRESTOR [Concomitant]
     Indication: PRODUCT USED FOR UNKNOWN INDICATION
  4. REBIF [Suspect]
     Indication: MULTIPLE SCLEROSIS
     Route: 058
     Dates: start: 20110921, end: 20111206
  5. IMURAN [Suspect]
     Dates: start: 20111206
  6. ACETAMINOPHEN [Concomitant]
     Indication: PRODUCT USED FOR UNKNOWN INDICATION
     Route: 048
  7. DIOSMINE [Concomitant]
     Indication: PRODUCT USED FOR UNKNOWN INDICATION
  8. MAGNESIUM [Concomitant]
     Indication: PRODUCT USED FOR UNKNOWN INDICATION

REACTIONS (6)
  - DEHYDRATION [None]
  - DECREASED APPETITE [None]
  - ASTHENIA [None]
  - DIARRHOEA [None]
  - OVERDOSE [None]
  - DRUG INTOLERANCE [None]
